FAERS Safety Report 19937494 (Version 1)
Quarter: 2021Q4

REPORT INFORMATION
  Report Type: Spontaneous
  Country: FR (occurrence: FR)
  Receive Date: 20211011
  Receipt Date: 20211011
  Transmission Date: 20220303
  Serious: Yes (Hospitalization, Congenital Anomaly, Other)
  Sender: FDA-Public Use
  Company Number: FR-ABBVIE-21K-056-4111905-00

PATIENT
  Sex: Male

DRUGS (2)
  1. VALPROATE SODIUM [Suspect]
     Active Substance: VALPROATE SODIUM
     Indication: Maternal exposure timing unspecified
     Route: 064
  2. PREPIDIL [Suspect]
     Active Substance: DINOPROSTONE
     Indication: Maternal exposure timing unspecified
     Route: 064

REACTIONS (32)
  - Dysmorphism [Unknown]
  - Inguinal hernia [Unknown]
  - Speech disorder developmental [Unknown]
  - Cognitive disorder [Unknown]
  - Abdominal hernia [Unknown]
  - Camptodactyly congenital [Unknown]
  - Speech disorder developmental [Unknown]
  - Exomphalos [Unknown]
  - Cleft palate [Unknown]
  - Educational problem [Unknown]
  - Duodenogastric reflux [Unknown]
  - Pulmonary hypoplasia [Unknown]
  - Atelectasis [Unknown]
  - Foot deformity [Unknown]
  - Impaired gastric emptying [Unknown]
  - Astigmatism [Unknown]
  - Refraction disorder [Unknown]
  - Eating disorder [Not Recovered/Not Resolved]
  - Deformity thorax [Unknown]
  - Regurgitation [Unknown]
  - Faecaloma [Unknown]
  - Hepatomegaly [Unknown]
  - Scoliosis [Unknown]
  - Meningioma [Unknown]
  - Hypermetropia [Unknown]
  - Lung hyperinflation [Unknown]
  - Hypoventilation [Unknown]
  - Dyspepsia [Unknown]
  - Infection [Unknown]
  - Disturbance in attention [Unknown]
  - Abdominal pain [Unknown]
  - Foetal exposure during pregnancy [Unknown]
